FAERS Safety Report 4532637-3 (Version None)
Quarter: 2004Q4

REPORT INFORMATION
  Report Type: 
  Country: None (occurrence: None)
  Receive Date: 20041220
  Receipt Date: 20041220
  Transmission Date: 20050328
  Serious: No
  Sender: FDA-Public Use
  Company Number: None

PATIENT
  Age: 48 Year
  Sex: Female
  Weight: 74.8435 kg

DRUGS (5)
  1. CELEBREX [Suspect]
     Indication: OSTEOARTHRITIS
     Dosage: 200 MG PO QD X 3 DOSES
     Route: 048
     Dates: start: 20030601, end: 20030602
  2. VIOXX [Concomitant]
  3. LEVOXYL [Concomitant]
  4. ZYRTEC [Concomitant]
  5. APAP TAB [Concomitant]

REACTIONS (4)
  - DRUG HYPERSENSITIVITY [None]
  - RASH ERYTHEMATOUS [None]
  - RASH GENERALISED [None]
  - RASH PRURITIC [None]
